FAERS Safety Report 18512376 (Version 1)
Quarter: 2020Q4

REPORT INFORMATION
  Report Type: Spontaneous
  Country: US (occurrence: US)
  Receive Date: 20201117
  Receipt Date: 20201117
  Transmission Date: 20210114
  Serious: Yes (Hospitalization)
  Sender: FDA-Public Use
  Company Number: US-CELGENEUS-USA-20201103185

PATIENT
  Sex: Male
  Weight: 112.59 kg

DRUGS (2)
  1. POMALYST [Suspect]
     Active Substance: POMALIDOMIDE
     Indication: PLASMA CELL LEUKAEMIA
  2. POMALYST [Suspect]
     Active Substance: POMALIDOMIDE
     Indication: PLASMACYTOSIS
     Dosage: 4 MILLIGRAM
     Route: 048
     Dates: start: 202006

REACTIONS (2)
  - White blood cell count decreased [Not Recovered/Not Resolved]
  - Muscle spasms [Not Recovered/Not Resolved]

NARRATIVE: CASE EVENT DATE: 2020
